FAERS Safety Report 7423183-8 (Version None)
Quarter: 2011Q2

REPORT INFORMATION
  Report Type: 
  Country: None (occurrence: None)
  Receive Date: 20110411
  Receipt Date: 20110328
  Transmission Date: 20111010
  Serious: Yes (Hospitalization)
  Sender: FDA-Public Use
  Company Number: 2010CP000277

PATIENT
  Age: 63 Year
  Sex: Female

DRUGS (9)
  1. PERFALGAN (PARACETAMOL) [Suspect]
     Indication: PYREXIA
     Dosage: 1 GM; IV
     Route: 042
     Dates: start: 20100906
  2. LOPERAMIDE [Concomitant]
  3. AMOXICILLIN W/CALVULANATE POTASSIUM (AMOXICILLIN W/ CLAVULANATE POTASS [Suspect]
     Indication: ANTIBIOTIC THERAPY
     Dates: start: 20100906
  4. SMECTITE [Concomitant]
  5. CHLORHEXIDINE GLUCONATE [Concomitant]
  6. DOLIPRANE (PARACETAMOL) [Suspect]
     Indication: PYREXIA
     Dosage: PO
     Route: 048
  7. CIPROFLOXACIN HCL (CIPROFLOXACIN HYDROXHLORIDE) [Concomitant]
     Indication: ANTIBIOTIC THERAPY
     Dates: start: 20100906
  8. ONDANSERTRON HYDROCHLORIDE [Concomitant]
  9. PHILOROGLUCINOL [Concomitant]

REACTIONS (5)
  - ANTI-HBS ANTIBODY POSITIVE [None]
  - CYTOLYTIC HEPATITIS [None]
  - HEPATIC FAILURE [None]
  - CHOLANGITIS [None]
  - ANALGESIC DRUG LEVEL ABOVE THERAPEUTIC [None]
